FAERS Safety Report 10267611 (Version 1)
Quarter: 2014Q2

REPORT INFORMATION
  Report Type: Spontaneous
  Country: US (occurrence: US)
  Receive Date: 20140630
  Receipt Date: 20140630
  Transmission Date: 20141212
  Serious: No
  Sender: FDA-Public Use
  Company Number: US-PFIZER INC-2014175171

PATIENT
  Age: 72 Year
  Sex: Female
  Weight: 72.56 kg

DRUGS (1)
  1. CELEBREX [Suspect]
     Indication: ARTHRITIS
     Dosage: UNK
     Dates: start: 201406, end: 201406

REACTIONS (1)
  - Pain [Not Recovered/Not Resolved]
